FAERS Safety Report 14558645 (Version 4)
Quarter: 2021Q3

REPORT INFORMATION
  Report Type: Report from Study
  Country: CA (occurrence: CA)
  Receive Date: 20180221
  Receipt Date: 20210716
  Transmission Date: 20211014
  Serious: Yes (Other)
  Sender: FDA-Public Use
  Company Number: PHHY2018CA023503

PATIENT
  Sex: Female

DRUGS (3)
  1. ILARIS [Suspect]
     Active Substance: CANAKINUMAB
     Dosage: 150 MG, Q4W
     Route: 058
     Dates: start: 20180820
  2. XOLAIR [Concomitant]
     Active Substance: OMALIZUMAB
     Indication: PRODUCT USED FOR UNKNOWN INDICATION
     Dosage: UNK
     Route: 065
     Dates: start: 20130825
  3. ILARIS [Suspect]
     Active Substance: CANAKINUMAB
     Indication: MUCKLE-WELLS SYNDROME
     Dosage: 150 MG, Q4W
     Route: 058
     Dates: start: 20131211, end: 20180215

REACTIONS (2)
  - Arthralgia [Unknown]
  - Thyroid neoplasm [Unknown]
